FAERS Safety Report 7093641-7 (Version None)
Quarter: 2010Q4

REPORT INFORMATION
  Report Type: 
  Country: None (occurrence: None)
  Receive Date: 20101110
  Receipt Date: 20090917
  Transmission Date: 20110411
  Serious: No
  Sender: FDA-Public Use
  Company Number: US-KINGPHARMUSA00001-K200901168

PATIENT
  Sex: Female
  Weight: 63.492 kg

DRUGS (3)
  1. EPIPEN [Suspect]
     Dosage: 0.3 MG, SINGLE
     Dates: start: 20090917, end: 20090917
  2. THYROID THERAPY [Concomitant]
     Indication: THYROID DISORDER
  3. CARDIAC THERAPY [Concomitant]
     Indication: CARDIAC DISORDER

REACTIONS (4)
  - ACCIDENTAL EXPOSURE [None]
  - EXPIRED DRUG ADMINISTERED [None]
  - INJECTION SITE DISCOLOURATION [None]
  - INJECTION SITE PAIN [None]
